FAERS Safety Report 5164766-8 (Version None)
Quarter: 2006Q4

REPORT INFORMATION
  Report Type: 
  Country: None (occurrence: None)
  Receive Date: 20061205
  Receipt Date: 20061128
  Transmission Date: 20070319
  Serious: Yes (Other)
  Sender: FDA-Public Use
  Company Number: RU-GLAXOSMITHKLINE-B0449115A

PATIENT
  Age: 45 Year
  Sex: Male
  Weight: 94 kg

DRUGS (3)
  1. FLIXONASE [Suspect]
     Indication: SEASONAL ALLERGY
     Route: 045
     Dates: start: 20060701, end: 20061001
  2. BUDESONIDE [Suspect]
     Dates: start: 20060801
  3. LORATADINE [Concomitant]
     Indication: SEASONAL ALLERGY
     Dosage: 10MG PER DAY
     Dates: start: 20060701, end: 20061001

REACTIONS (4)
  - DRUG INEFFECTIVE [None]
  - NASAL DRYNESS [None]
  - OEDEMA MUCOSAL [None]
  - PHARMACEUTICAL PRODUCT COMPLAINT [None]
